FAERS Safety Report 18053433 (Version 1)
Quarter: 2020Q3

REPORT INFORMATION
  Report Type: Spontaneous
  Country: US (occurrence: US)
  Receive Date: 20200721
  Receipt Date: 20200721
  Transmission Date: 20201103
  Serious: Yes (Other)
  Sender: FDA-Public Use
  Company Number: None

PATIENT
  Age: 82 Year
  Sex: Female
  Weight: 114 kg

DRUGS (3)
  1. ENOXAPARIN SQ [Concomitant]
     Dates: start: 20200717
  2. REMDESIVIR EUA 100MG [Suspect]
     Active Substance: REMDESIVIR
     Indication: COVID-19
     Route: 042
     Dates: start: 20200715, end: 20200719
  3. DEXAMETHASONE IV [Concomitant]
     Active Substance: DEXAMETHASONE
     Dates: start: 20200715

REACTIONS (2)
  - Skin disorder [None]
  - Infusion site extravasation [None]

NARRATIVE: CASE EVENT DATE: 20200717
